FAERS Safety Report 9731894 (Version 1)
Quarter: 2013Q4

REPORT INFORMATION
  Report Type: Spontaneous
  Country: US (occurrence: None)
  Receive Date: 20131204
  Receipt Date: 20131204
  Transmission Date: 20140711
  Serious: Yes (Other)
  Sender: FDA-Public Use
  Company Number: None

PATIENT
  Age: 85 Year
  Sex: Female

DRUGS (1)
  1. IMIPRAMINE [Suspect]
     Indication: INCONTINENCE
     Route: 048

REACTIONS (13)
  - Stupor [None]
  - Memory impairment [None]
  - Vision blurred [None]
  - Somnolence [None]
  - Dizziness [None]
  - Paraesthesia [None]
  - Tinnitus [None]
  - Constipation [None]
  - Confusional state [None]
  - Feeling hot [None]
  - Drug ineffective [None]
  - Mental impairment [None]
  - General physical condition abnormal [None]
